FAERS Safety Report 17230740 (Version 2)
Quarter: 2020Q1

REPORT INFORMATION
  Report Type: Report from Study
  Country: DE (occurrence: DE)
  Receive Date: 20200103
  Receipt Date: 20200117
  Transmission Date: 20200409
  Serious: No
  Sender: FDA-Public Use
  Company Number: DE-ASTRAZENECA-2019SF92284

PATIENT
  Sex: Female

DRUGS (12)
  1. PROGESTERONE. [Suspect]
     Active Substance: PROGESTERONE
     Route: 065
  2. CLOBETASOL [Suspect]
     Active Substance: CLOBETASOL
     Route: 065
  3. ZOLPIDEM [Suspect]
     Active Substance: ZOLPIDEM TARTRATE
     Route: 065
  4. OMEPRAZOLE. [Suspect]
     Active Substance: OMEPRAZOLE
     Route: 048
  5. NICOTINE. [Suspect]
     Active Substance: NICOTINE
     Route: 065
  6. FLUTICASONE. [Suspect]
     Active Substance: FLUTICASONE
     Route: 065
  7. LORAZEPAM. [Suspect]
     Active Substance: LORAZEPAM
     Dosage: DURING FIRST TO THIRD TRIMESTER
     Route: 065
  8. METFORMIN [Suspect]
     Active Substance: METFORMIN HYDROCHLORIDE
     Route: 065
  9. SALMETEROL [Suspect]
     Active Substance: SALMETEROL
     Route: 065
  10. INSULIN [Suspect]
     Active Substance: INSULIN NOS
     Route: 065
  11. PARACETAMOL [Suspect]
     Active Substance: ACETAMINOPHEN
     Indication: PYREXIA
     Dosage: FROM 18 PLUS 5 TO 23 WEEKS OF GESTATION
     Route: 065
  12. SALBUTAMOL [Suspect]
     Active Substance: ALBUTEROL
     Route: 065

REACTIONS (1)
  - Exposure during pregnancy [Unknown]
